FAERS Safety Report 6223349-9 (Version None)
Quarter: 2009Q2

REPORT INFORMATION
  Report Type: 
  Country: None (occurrence: None)
  Receive Date: 20090611
  Receipt Date: 20090602
  Transmission Date: 20091009
  Serious: Yes (Hospitalization, Other)
  Sender: FDA-Public Use
  Company Number: US-AMGEN-QUU349568

PATIENT
  Age: 66 Year
  Sex: Male

DRUGS (8)
  1. ENBREL [Suspect]
     Indication: PSORIASIS
     Route: 058
  2. ENBREL [Suspect]
     Indication: PSORIATIC ARTHROPATHY
  3. PROTONIX [Concomitant]
  4. FLOMAX [Concomitant]
     Route: 048
  5. LEXAPRO [Concomitant]
     Route: 048
  6. FOLIC ACID [Concomitant]
     Route: 048
  7. ASPIRIN [Concomitant]
     Route: 048
  8. LOVAZA [Concomitant]

REACTIONS (2)
  - GUILLAIN-BARRE SYNDROME [None]
  - INTERVERTEBRAL DISC DISORDER [None]
